FAERS Safety Report 4973219-9 (Version None)
Quarter: 2006Q2

REPORT INFORMATION
  Report Type: 
  Country: None (occurrence: None)
  Receive Date: 20060407
  Receipt Date: 20060324
  Transmission Date: 20061013
  Serious: Yes (Hospitalization)
  Sender: FDA-Public Use
  Company Number: 13788

PATIENT
  Age: 68 Year
  Sex: Male
  Weight: 68 kg

DRUGS (8)
  1. CISPLATIN [Suspect]
     Indication: NON-SMALL CELL LUNG CANCER
     Dosage: 144 MG PER_CYCLE IV
     Route: 042
     Dates: start: 20051201, end: 20060208
  2. VINORELBINE [Suspect]
     Indication: NON-SMALL CELL LUNG CANCER
     Dosage: 33 MG PER_CYCLE IV
     Route: 042
     Dates: start: 20051201, end: 20060215
  3. SYMBICORT [Concomitant]
  4. BRICANYL [Concomitant]
  5. CLARITHROMYCIN [Concomitant]
  6. CIPROFLOXACIN HCL [Concomitant]
  7. DOMPERIDONE [Concomitant]
  8. DEXAMETHASONE [Concomitant]

REACTIONS (4)
  - DYSPNOEA [None]
  - NEUTROPENIC SEPSIS [None]
  - PRODUCTIVE COUGH [None]
  - WHEEZING [None]
